FAERS Safety Report 17410272 (Version 1)
Quarter: 2020Q1

REPORT INFORMATION
  Report Type: Spontaneous
  Country: US (occurrence: US)
  Receive Date: 20200212
  Receipt Date: 20200212
  Transmission Date: 20200409
  Serious: No
  Sender: FDA-Public Use
  Company Number: US-SA-2020SA035818

PATIENT

DRUGS (1)
  1. XYZAL ALLERGY 24HR [Suspect]
     Active Substance: LEVOCETIRIZINE DIHYDROCHLORIDE
     Dosage: UNK
     Route: 065

REACTIONS (8)
  - Ear pain [Unknown]
  - Throat tightness [Unknown]
  - Sneezing [Unknown]
  - Nasal discomfort [Unknown]
  - Hypersensitivity [Unknown]
  - Lacrimation increased [Unknown]
  - Malaise [Unknown]
  - Headache [Unknown]
